FAERS Safety Report 5569600-X (Version None)
Quarter: 2007Q4

REPORT INFORMATION
  Report Type: 
  Country: None (occurrence: None)
  Receive Date: 20071220
  Receipt Date: 20071210
  Transmission Date: 20080405
  Serious: Yes (Hospitalization)
  Sender: FDA-Public Use
  Company Number: FR-ABBOTT-07P-056-0423207-00

PATIENT
  Sex: Male

DRUGS (10)
  1. ODRIK [Suspect]
     Indication: CARDIAC FAILURE
     Route: 048
  2. ODRIK [Suspect]
     Route: 048
  3. ODRIK [Suspect]
     Dates: end: 20070209
  4. FUROSEMIDE [Suspect]
     Indication: CARDIAC FAILURE
     Route: 048
     Dates: end: 20070214
  5. FUROSEMIDE [Suspect]
     Route: 048
     Dates: start: 20070214, end: 20070216
  6. FUROSEMIDE [Suspect]
     Route: 048
     Dates: start: 20070216
  7. BISOPROLOL [Concomitant]
     Indication: DRUG USE FOR UNKNOWN INDICATION
     Route: 048
  8. DIGOXIN [Concomitant]
     Indication: DRUG USE FOR UNKNOWN INDICATION
     Route: 048
  9. FLUINDIONE [Concomitant]
     Indication: DRUG USE FOR UNKNOWN INDICATION
     Route: 048
  10. GALENIC /FLUTICASONE/SALMETEROL/ [Concomitant]
     Indication: DRUG USE FOR UNKNOWN INDICATION
     Route: 055

REACTIONS (3)
  - BLOOD CREATININE INCREASED [None]
  - HYPERKALAEMIA [None]
  - RENAL FAILURE [None]
